FAERS Safety Report 8377240-2 (Version None)
Quarter: 2012Q2

REPORT INFORMATION
  Report Type: 
  Country: None (occurrence: None)
  Receive Date: 20120522
  Receipt Date: 20120510
  Transmission Date: 20120825
  Serious: Yes (Other)
  Sender: FDA-Public Use
  Company Number: DK-COVIDIEN/TYCO HEALTHCARE/MALLINCKRODT-T201201727

PATIENT
  Age: 52 Year
  Sex: Female

DRUGS (2)
  1. TRAMADOL HYDROCHLORIDE [Interacting]
     Indication: ARTHRALGIA
     Dosage: 200 MG, BID
     Route: 048
  2. BUPRENORPHINE [Suspect]
     Indication: ARTHRALGIA
     Dosage: 10 MG, HR EVERY 7 DAYS
     Route: 062

REACTIONS (2)
  - HYPERSENSITIVITY [None]
  - DRUG INTERACTION [None]
